FAERS Safety Report 4337502-2 (Version None)
Quarter: 2004Q2

REPORT INFORMATION
  Report Type: 
  Country: None (occurrence: None)
  Receive Date: 20040412
  Receipt Date: 20040412
  Transmission Date: 20050107
  Serious: Yes (Other)
  Sender: FDA-Public Use
  Company Number: None

PATIENT
  Sex: Female
  Weight: 64.4108 kg

DRUGS (2)
  1. TIZANIDINE HCL [Suspect]
     Indication: MUSCLE CRAMP
     Dosage: 4 MG 2 TABS HS ORAL
     Route: 048
     Dates: start: 20040224, end: 20040404
  2. TIZANIDINE HCL [Suspect]
     Indication: MUSCLE SPASMS
     Dosage: 4 MG 2 TABS HS ORAL
     Route: 048
     Dates: start: 20040224, end: 20040404

REACTIONS (1)
  - VENTRICULAR EXTRASYSTOLES [None]
